FAERS Safety Report 7624479-7 (Version None)
Quarter: 2011Q3

REPORT INFORMATION
  Report Type: 
  Country: None (occurrence: None)
  Receive Date: 20110720
  Receipt Date: 20110710
  Transmission Date: 20111222
  Serious: Yes (Hospitalization, Other)
  Sender: FDA-Public Use
  Company Number: US-BAYER-201042144NA

PATIENT
  Age: 31 Year
  Sex: Female
  Weight: 70.295 kg

DRUGS (16)
  1. YASMIN [Suspect]
     Dosage: UNK
     Dates: start: 20030301, end: 20080501
  2. YASMIN [Suspect]
     Dosage: UNK
     Dates: start: 20080901, end: 20081031
  3. YASMIN [Suspect]
     Dosage: UNK
     Dates: start: 20030101
  4. ALBUTEROL SULFATE AUTOHALER [Concomitant]
     Indication: ASTHMA
     Dosage: UNK UNK, QD
  5. ADVAIR DISKUS 100/50 [Concomitant]
     Indication: ASTHMA
     Dosage: UNK UNK, QD
  6. LORAZEPAM [Concomitant]
     Dosage: 0.5 MG, UNK
  7. AMOXICILLIN [Concomitant]
     Dosage: 500 MG, UNK
  8. YASMIN [Suspect]
     Indication: PRODUCT USED FOR UNKNOWN INDICATION
     Dosage: UNK
     Route: 048
     Dates: start: 20030301, end: 20081001
  9. AZITHROMYCIN [Concomitant]
     Dosage: 250 MG, UNK
  10. IBUPROFEN (ADVIL) [Concomitant]
  11. ANTIBIOTICS [Concomitant]
  12. PROVENTIL [Concomitant]
     Dosage: 90 UNK, UNK
  13. HYDROCODONE [Concomitant]
  14. ALPRAZOLAM [Concomitant]
     Dosage: 0.25 MG, UNK
  15. BUTALBITAL [Concomitant]
  16. ADVAIR DISKUS 100/50 [Concomitant]

REACTIONS (3)
  - CHOLECYSTITIS CHRONIC [None]
  - GALLBLADDER DISORDER [None]
  - CHOLELITHIASIS [None]
